FAERS Safety Report 8462826-7 (Version None)
Quarter: 2012Q2

REPORT INFORMATION
  Report Type: 
  Country: None (occurrence: None)
  Receive Date: 20120625
  Receipt Date: 20120615
  Transmission Date: 20120825
  Serious: Yes (Death, Other)
  Sender: FDA-Public Use
  Company Number: JP-MPIJNJ-2012-04283

PATIENT

DRUGS (1)
  1. VELCADE [Suspect]
     Indication: LEUKAEMIA PLASMACYTIC
     Dosage: 0.7 MG/M2, CYCLIC

REACTIONS (3)
  - BRONCHOPULMONARY ASPERGILLOSIS [None]
  - MALIGNANT ASCITES [None]
  - PLEURAL EFFUSION [None]
